FAERS Safety Report 16737342 (Version 1)
Quarter: 2019Q3

REPORT INFORMATION
  Report Type: Spontaneous
  Country: US (occurrence: US)
  Receive Date: 20190823
  Receipt Date: 20190823
  Transmission Date: 20191005
  Serious: No
  Sender: FDA-Public Use
  Company Number: US-LEXICON PHARMACEUTICALS, INC-19-1606-00827

PATIENT
  Sex: Female

DRUGS (1)
  1. TELOTRISTAT ETHYL [Suspect]
     Active Substance: TELOTRISTAT ETHYL
     Indication: CARCINOID SYNDROME
     Route: 048
     Dates: start: 20180830

REACTIONS (6)
  - Abdominal pain [Unknown]
  - Pruritus [Unknown]
  - Anorectal discomfort [Unknown]
  - Fungal infection [Unknown]
  - Constipation [Unknown]
  - Proctalgia [Unknown]
